FAERS Safety Report 21701520 (Version 3)
Quarter: 2023Q1

REPORT INFORMATION
  Report Type: Report from Study
  Country: JP (occurrence: JP)
  Receive Date: 20221208
  Receipt Date: 20230109
  Transmission Date: 20230417
  Serious: Yes (Death, Life-Threatening)
  Sender: FDA-Public Use
  Company Number: JP-PFIZER INC-PV202200117950

PATIENT
  Age: 89 Year
  Sex: Female
  Weight: 36.2 kg

DRUGS (6)
  1. NIRMATRELVIR\RITONAVIR [Suspect]
     Active Substance: NIRMATRELVIR\RITONAVIR
     Indication: COVID-19 treatment
     Dosage: [PF-07321332 150 MG]/[RITONAVIR 100 MG]; 2X/DAY
     Dates: start: 20220822, end: 20220823
  2. URAPIDIL [Concomitant]
     Active Substance: URAPIDIL
     Indication: Dysuria
     Dosage: UNK
     Route: 048
     Dates: start: 20220722, end: 20220826
  3. CARBOHYDRATES\FATTY ACIDS\MINERALS\PROTEIN\VITAMINS [Concomitant]
     Active Substance: CARBOHYDRATES\FATTY ACIDS\MINERALS\PROTEIN\VITAMINS
     Indication: Nutritional supplementation
     Dosage: UNK
     Route: 048
     Dates: start: 20220705, end: 20220826
  4. CARBIDOPA\LEVODOPA [Concomitant]
     Active Substance: CARBIDOPA\LEVODOPA
     Indication: Ataxia
     Dosage: UNK
     Route: 048
     Dates: start: 20201208, end: 20220826
  5. MAGNESIUM OXIDE [Concomitant]
     Active Substance: MAGNESIUM OXIDE
     Indication: Constipation
     Dosage: UNK
     Route: 048
     Dates: start: 20201208, end: 20220826
  6. EDOXABAN TOSYLATE [Concomitant]
     Active Substance: EDOXABAN TOSYLATE
     Indication: Thrombosis prophylaxis
     Dosage: UNK
     Route: 048
     Dates: start: 20220705, end: 20220826

REACTIONS (2)
  - Cardiac failure [Fatal]
  - Pneumonia aspiration [Recovering/Resolving]

NARRATIVE: CASE EVENT DATE: 20220823
